FAERS Safety Report 9363090 (Version 1)
Quarter: 2013Q2

REPORT INFORMATION
  Report Type: Spontaneous
  Country: US (occurrence: US)
  Receive Date: 20130624
  Receipt Date: 20130624
  Transmission Date: 20140414
  Serious: No
  Sender: FDA-Public Use
  Company Number: US-PFIZER INC-2013151117

PATIENT
  Age: 8 Year
  Sex: Male

DRUGS (2)
  1. QUILLIVANT XR [Suspect]
     Indication: ATTENTION DEFICIT/HYPERACTIVITY DISORDER
     Dosage: 75 MG, EACH MORNING
     Route: 048
     Dates: start: 20130423
  2. METHYLIN [Concomitant]
     Dosage: 5 MG VERY AM AND VERY AFTERNOON

REACTIONS (2)
  - Off label use [Unknown]
  - Drug tolerance [Unknown]
